FAERS Safety Report 21396851 (Version 1)
Quarter: 2022Q3

REPORT INFORMATION
  Report Type: Spontaneous
  Country: JP (occurrence: JP)
  Receive Date: 20220930
  Receipt Date: 20220930
  Transmission Date: 20221027
  Serious: Yes (Other)
  Sender: FDA-Public Use
  Company Number: JP-PFIZER INC-202201184262

PATIENT
  Age: 26 Year
  Sex: Female

DRUGS (11)
  1. DAUNORUBICIN HYDROCHLORIDE [Suspect]
     Active Substance: DAUNORUBICIN HYDROCHLORIDE
     Indication: B-cell type acute leukaemia
     Dosage: 45 MG/M2, DAILY, DAYS 1-3
  2. METHOTREXATE SODIUM [Suspect]
     Active Substance: METHOTREXATE SODIUM
     Indication: B-cell type acute leukaemia
     Dosage: 15 MG
  3. VINCRISTINE [Suspect]
     Active Substance: VINCRISTINE
     Indication: B-cell type acute leukaemia
     Dosage: 1.3 MG/M2, DAILY, DAYS 1, 8, 15, AND 22
  4. CYCLOPHOSPHAMIDE [Suspect]
     Active Substance: CYCLOPHOSPHAMIDE
     Indication: B-cell type acute leukaemia
     Dosage: 1200 MG/M2 , DAY 1
  5. ASPARAGINASE [Suspect]
     Active Substance: ASPARAGINASE
     Indication: B-cell type acute leukaemia
     Dosage: 5000 KU/M2/DAY, DAYS 8, 10, 12, 14, 16, 18, 20, AND 22
  6. CYTARABINE [Suspect]
     Active Substance: CYTARABINE
     Indication: B-cell type acute leukaemia
     Dosage: 40 MG
  7. PREDNISOLONE [Suspect]
     Active Substance: PREDNISOLONE
     Indication: B-cell type acute leukaemia
     Dosage: 15 MG/M2, DAILY AND TITRATED UP TO 60 MG/M2/DAY WAS ADMINISTERED FOR 5 DAYS AS PRE-INDUCTION THERAPY
  8. PREDNISOLONE [Suspect]
     Active Substance: PREDNISOLONE
     Dosage: 60 MG/M2, DAILY, DAYS 3-23
  9. PREDNISOLONE [Suspect]
     Active Substance: PREDNISOLONE
     Dosage: 20 MG
  10. DEXAMETHASONE [Suspect]
     Active Substance: DEXAMETHASONE
     Dosage: UNK
  11. BUSERELIN [Suspect]
     Active Substance: BUSERELIN
     Dosage: 1.8 MG (EVERY 28 DAYS)

REACTIONS (1)
  - Reproductive toxicity [Unknown]
